FAERS Safety Report 18646869 (Version 2)
Quarter: 2021Q1

REPORT INFORMATION
  Report Type: Spontaneous
  Country: IT (occurrence: IT)
  Receive Date: 20201222
  Receipt Date: 20210105
  Transmission Date: 20210419
  Serious: Yes (Life-Threatening, Other)
  Sender: FDA-Public Use
  Company Number: IT-AUROBINDO-AUR-APL-2020-061650

PATIENT
  Age: 22 Year
  Sex: Female

DRUGS (3)
  1. PARACETAMOL TABLET [Suspect]
     Active Substance: ACETAMINOPHEN
     Indication: PRODUCT USED FOR UNKNOWN INDICATION
     Dosage: 13500 MILLIGRAM, IN TOTAL
     Route: 048
     Dates: start: 20201204, end: 20201204
  2. QUETIAPINE. [Concomitant]
     Active Substance: QUETIAPINE
     Indication: ADJUSTMENT DISORDER WITH DEPRESSED MOOD
     Dosage: 50 MILLIGRAM
     Route: 048
  3. BUSCOFEN [Suspect]
     Active Substance: IBUPROFEN SODIUM
     Indication: PRODUCT USED FOR UNKNOWN INDICATION
     Dosage: 400 MILLIGRAM, IN TOTAL
     Route: 048
     Dates: start: 20201204, end: 20201204

REACTIONS (8)
  - Intentional self-injury [Unknown]
  - Overdose [Unknown]
  - Drug abuse [Unknown]
  - Drug-induced liver injury [Unknown]
  - Malaise [Unknown]
  - Dysuria [Unknown]
  - Vomiting [Unknown]
  - Abdominal pain upper [Unknown]

NARRATIVE: CASE EVENT DATE: 20201206
